FAERS Safety Report 14154248 (Version 1)
Quarter: 2017Q4

REPORT INFORMATION
  Report Type: Report from Study
  Country: US (occurrence: US)
  Receive Date: 20171102
  Receipt Date: 20171102
  Transmission Date: 20180321
  Serious: Yes (Hospitalization)
  Sender: FDA-Public Use
  Company Number: US-EISAI MEDICAL RESEARCH-EC-2017-029622

PATIENT
  Age: 76 Year
  Sex: Male
  Weight: 98 kg

DRUGS (9)
  1. ALBUTEROL. [Concomitant]
     Active Substance: ALBUTEROL
  2. ALLOPURINOL. [Concomitant]
     Active Substance: ALLOPURINOL
  3. AMLODIPINE [Concomitant]
     Active Substance: AMLODIPINE BESYLATE
  4. LISINOPRIL. [Concomitant]
     Active Substance: LISINOPRIL
  5. LENVIMA [Suspect]
     Active Substance: LENVATINIB
     Route: 048
     Dates: start: 201707
  6. ASPIRIN. [Concomitant]
     Active Substance: ASPIRIN
  7. LENVIMA [Suspect]
     Active Substance: LENVATINIB
     Indication: METASTATIC RENAL CELL CARCINOMA
     Route: 048
     Dates: start: 20170714, end: 201707
  8. AFINITOR [Concomitant]
     Active Substance: EVEROLIMUS
  9. LEVOTHYROXINE. [Concomitant]
     Active Substance: LEVOTHYROXINE

REACTIONS (15)
  - Dysgeusia [Unknown]
  - Asthenia [Unknown]
  - Pneumonia [Unknown]
  - Abdominal pain [Unknown]
  - Dysphonia [Unknown]
  - Hypotension [Unknown]
  - Tension headache [Recovered/Resolved]
  - Myocardial infarction [Unknown]
  - Cough [Unknown]
  - Diarrhoea [Unknown]
  - Flatulence [Unknown]
  - Weight decreased [Unknown]
  - Oral discomfort [Unknown]
  - Pleural effusion [Unknown]
  - Dyspnoea [Unknown]

NARRATIVE: CASE EVENT DATE: 2017
